FAERS Safety Report 6094695-7 (Version None)
Quarter: 2009Q1

REPORT INFORMATION
  Report Type: 
  Country: None (occurrence: None)
  Receive Date: 20090224
  Receipt Date: 20090220
  Transmission Date: 20090719
  Serious: Yes (Death, Hospitalization)
  Sender: FDA-Public Use
  Company Number: 2008SP019251

PATIENT
  Age: 71 Year
  Sex: Female
  Weight: 67.5 kg

DRUGS (6)
  1. TEMODAL [Suspect]
     Indication: ANAPLASTIC ASTROCYTOMA
     Dosage: 130 MG; QD; PO
     Route: 048
     Dates: start: 20080124, end: 20080309
  2. ALLOPURINOL [Suspect]
     Indication: DRUG USE FOR UNKNOWN INDICATION
     Dosage: 100 MG; QD; PO
     Route: 048
  3. ESIDRIX [Suspect]
     Indication: DRUG USE FOR UNKNOWN INDICATION
     Dosage: 12.5 MG; QD; PO
     Route: 048
  4. LAMICTAL [Suspect]
     Indication: DRUG USE FOR UNKNOWN INDICATION
     Dosage: 100 MG; QD; PO
     Route: 048
     Dates: start: 20071101
  5. COZAAR [Concomitant]
  6. ZOPHREN [Concomitant]

REACTIONS (7)
  - ANAEMIA [None]
  - EPISTAXIS [None]
  - LEUKOPENIA [None]
  - NEUTROPENIA [None]
  - PULMONARY EMBOLISM [None]
  - SUDDEN DEATH [None]
  - THROMBOCYTOPENIA [None]
